FAERS Safety Report 6043300 (Version 22)
Quarter: 2013Q4

REPORT INFORMATION
  Report Type: Spontaneous
  Country: US (occurrence: US)
  Receive Date: 20060511
  Receipt Date: 20131113
  Transmission Date: 20140711
  Serious: Yes (Death, Hospitalization, Other)
  Sender: FDA-Public Use
  Company Number: PHEH2006US05814

PATIENT
  Age: 57 Year
  Sex: Male
  Weight: 87.07 kg

DRUGS (44)
  1. ZOMETA [Suspect]
     Indication: METASTASES TO BONE
     Dates: start: 200412, end: 200601
  2. CHEMOTHERAPEUTICS,OTHER [Concomitant]
     Dates: start: 200412, end: 200509
  3. ZOLADEX [Concomitant]
     Dosage: 10.8 MG, QMO
  4. PENICILLIN NOS [Concomitant]
     Dosage: 500 MG, QID
  5. VITAMINS NOS [Concomitant]
  6. CRESTOR [Concomitant]
     Dosage: 5 MG, QOD
  7. OXYCODONE [Concomitant]
  8. CALCIUM [Concomitant]
  9. MEGESTROL [Concomitant]
     Dosage: 50 MG, QD
  10. MEGESTROL [Concomitant]
     Dosage: 20 MG, QD
  11. ACETYLSALICYLIC ACID [Concomitant]
  12. CASODEX [Concomitant]
  13. PERCOCET [Concomitant]
  14. FLOMAX ^BOEHRINGER INGELHEIM^ [Concomitant]
     Dates: start: 2003
  15. HYDROCODONE W/ACETAMINOPHEN [Concomitant]
  16. HORMONES NOS [Concomitant]
  17. NEXIUM [Concomitant]
  18. COUMADIN ^BOOTS^ [Concomitant]
  19. ZOCOR ^DIECKMANN^ [Concomitant]
  20. DETROL [Concomitant]
  21. LORTAB [Concomitant]
  22. LUPRON [Concomitant]
  23. NILANDRON [Concomitant]
  24. PRILOSEC [Concomitant]
  25. ZOFRAN [Concomitant]
  26. OXYCONTIN [Concomitant]
  27. PREDNISONE [Concomitant]
     Indication: PROSTATE CANCER
  28. KETOCONAZOLE [Concomitant]
  29. LEVAQUIN [Concomitant]
  30. THALOMID [Concomitant]
     Dosage: 100 MG, QD
  31. DOCUSATE SODIUM [Concomitant]
  32. MORPHINE [Concomitant]
     Dosage: 30 MG, PRN
  33. QUADRAMET [Concomitant]
  34. RADIATION THERAPY [Concomitant]
     Dates: start: 2004, end: 200701
  35. ASPIRIN ^BAYER^ [Concomitant]
     Dosage: 81 MG, QD
  36. DIETHYLSTILBESTROL [Concomitant]
     Indication: PROSTATE CANCER
  37. TAXOTERE [Concomitant]
     Indication: PROSTATE CANCER
  38. TAXOL [Concomitant]
     Indication: PROSTATE CANCER
  39. COLACE [Concomitant]
  40. EMEND [Concomitant]
  41. SENOKOT [Concomitant]
  42. MILK OF MAGNESIA [Concomitant]
  43. CELEBREX [Concomitant]
     Dosage: 200 MG, QD
  44. DARVOCET-N [Concomitant]

REACTIONS (96)
  - Respiratory failure [Fatal]
  - Pulmonary oedema [Fatal]
  - Dyspnoea [Fatal]
  - Prostate cancer metastatic [Fatal]
  - Malignant neoplasm progression [Fatal]
  - Metastases to spine [Fatal]
  - Thrombocytopenia [Fatal]
  - Mitral valve incompetence [Unknown]
  - Cardiac murmur [Unknown]
  - Concomitant disease progression [Unknown]
  - Osteonecrosis of jaw [Unknown]
  - Abscess jaw [Unknown]
  - Gingival pain [Unknown]
  - Pain in jaw [Unknown]
  - Osteomyelitis [Unknown]
  - Primary sequestrum [Unknown]
  - Oedema [Unknown]
  - Haemorrhage [Unknown]
  - Hypoaesthesia oral [Unknown]
  - Hypophagia [Unknown]
  - Insomnia [Unknown]
  - Bone disorder [Unknown]
  - Purulent discharge [Unknown]
  - Metastases to lymph nodes [Fatal]
  - Metastases to bone [Fatal]
  - Urinary retention [Unknown]
  - Loose tooth [Not Recovered/Not Resolved]
  - Impaired healing [Not Recovered/Not Resolved]
  - Infection [Not Recovered/Not Resolved]
  - Prostatic specific antigen increased [Fatal]
  - Oropharyngeal plaque [Unknown]
  - Periodontal disease [Unknown]
  - Dental caries [Unknown]
  - Poor personal hygiene [Unknown]
  - Gingival disorder [Unknown]
  - Periodontitis [Unknown]
  - Tooth disorder [Unknown]
  - Dehydration [Unknown]
  - Vomiting [Unknown]
  - Nausea [Unknown]
  - Haematuria [Unknown]
  - Anaemia [Unknown]
  - Atrial fibrillation [Unknown]
  - Metabolic acidosis [Unknown]
  - Acute myocardial infarction [Unknown]
  - Left ventricular hypertrophy [Unknown]
  - Staphylococcal infection [Unknown]
  - Thyroiditis [Unknown]
  - Hypotension [Unknown]
  - Duodenal obstruction [Unknown]
  - Haemorrhoids [Unknown]
  - Abdominal discomfort [Unknown]
  - Oesophagogastroduodenoscopy [Unknown]
  - Depression [Unknown]
  - Abdominal mass [Unknown]
  - Proctalgia [Unknown]
  - Hiatus hernia [Unknown]
  - Abdominal distension [Unknown]
  - Decreased appetite [Unknown]
  - Weight decreased [Recovered/Resolved]
  - Sinus tachycardia [Unknown]
  - Bone loss [Unknown]
  - Hypochromasia [Unknown]
  - Polychromasia [Unknown]
  - Syncope [Unknown]
  - Anisocytosis [Unknown]
  - Erectile dysfunction [Unknown]
  - Bladder obstruction [Unknown]
  - Conjunctival discolouration [Unknown]
  - Microcytosis [Unknown]
  - Chills [Unknown]
  - Rouleaux formation [Unknown]
  - Blood glucose increased [Unknown]
  - Micturition urgency [Unknown]
  - Faeces discoloured [Unknown]
  - Mass [Unknown]
  - Lymphopenia [Unknown]
  - Nervousness [Unknown]
  - Pollakiuria [Unknown]
  - Memory impairment [Unknown]
  - Epistaxis [Unknown]
  - Dyspepsia [Unknown]
  - Vision blurred [Unknown]
  - Chronic obstructive pulmonary disease [Unknown]
  - Diastolic dysfunction [Unknown]
  - Aortic stenosis [Unknown]
  - Blood pressure systolic increased [Unknown]
  - Aortic arteriosclerosis [Unknown]
  - Basal cell carcinoma [Unknown]
  - Presbyopia [Unknown]
  - Astigmatism [Unknown]
  - Penile haemorrhage [Unknown]
  - Blood urine present [Unknown]
  - Deafness [Unknown]
  - Eye naevus [Unknown]
  - Glaucoma [Unknown]
